FAERS Safety Report 6329088-8 (Version None)
Quarter: 2009Q3

REPORT INFORMATION
  Report Type: 
  Country: None (occurrence: None)
  Receive Date: 20090826
  Receipt Date: 20090817
  Transmission Date: 20100115
  Serious: Yes (Other)
  Sender: FDA-Public Use
  Company Number: US-ROCHE-428886

PATIENT
  Age: 61 Year
  Sex: Female

DRUGS (1)
  1. BONIVA [Suspect]
     Indication: OSTEOPENIA
     Route: 048
     Dates: start: 20030101, end: 20090810

REACTIONS (5)
  - BACK PAIN [None]
  - DYSPHAGIA [None]
  - GASTRITIS [None]
  - MUSCLE INJURY [None]
  - PAIN IN EXTREMITY [None]
